FAERS Safety Report 5324887-3 (Version None)
Quarter: 2007Q2

REPORT INFORMATION
  Report Type: 
  Country: None (occurrence: None)
  Receive Date: 20070515
  Receipt Date: 20070511
  Transmission Date: 20071010
  Serious: Yes (Hospitalization)
  Sender: FDA-Public Use
  Company Number: FRWYE647114MAY07

PATIENT
  Age: 3 Year
  Sex: Female
  Weight: 20 kg

DRUGS (1)
  1. ADVIL [Suspect]
     Indication: PYREXIA
     Dosage: UNKNOWN
     Route: 048
     Dates: start: 20070414

REACTIONS (3)
  - ABDOMINAL PAIN [None]
  - PNEUMONIA PNEUMOCOCCAL [None]
  - VOMITING [None]
